FAERS Safety Report 6576761-2 (Version None)
Quarter: 2010Q1

REPORT INFORMATION
  Report Type: 
  Country: None (occurrence: None)
  Receive Date: 20100210
  Receipt Date: 20100129
  Transmission Date: 20100710
  Serious: Yes (Other)
  Sender: FDA-Public Use
  Company Number: FR-ELI_LILLY_AND_COMPANY-FR200912004266

PATIENT
  Age: 35 Year
  Sex: Male
  Weight: 79 kg

DRUGS (5)
  1. CYMBALTA [Suspect]
     Indication: DEPRESSION
     Dosage: 60 MG, DAILY (1/D)
     Route: 048
     Dates: start: 20091015, end: 20091214
  2. CONTRAMAL [Concomitant]
     Indication: BACK PAIN
     Dosage: 300 MG, DAILY (1/D)
     Route: 048
     Dates: start: 20091015
  3. TRIATEC [Concomitant]
     Indication: HYPERTENSION
     Route: 048
     Dates: start: 20091015
  4. PRAZEPAM [Concomitant]
     Indication: ANXIETY
     Dosage: 30 MG, DAILY (1/D)
     Dates: start: 20091015
  5. TEGRETOL [Concomitant]
     Indication: DYSTHYMIC DISORDER
     Dosage: 400 MG, DAILY (1/D)
     Route: 048
     Dates: start: 20091027

REACTIONS (5)
  - ALANINE AMINOTRANSFERASE INCREASED [None]
  - ASPARTATE AMINOTRANSFERASE INCREASED [None]
  - BLOOD BILIRUBIN INCREASED [None]
  - GAMMA-GLUTAMYLTRANSFERASE INCREASED [None]
  - HEPATOCELLULAR INJURY [None]
